FAERS Safety Report 14281975 (Version 1)
Quarter: 2017Q4

REPORT INFORMATION
  Report Type: Other
  Country: ES (occurrence: ES)
  Receive Date: 20171213
  Receipt Date: 20171213
  Transmission Date: 20180321
  Serious: Yes (Other)
  Sender: FDA-Public Use
  Company Number: ES-RARE DISEASE THERAPEUTICS, INC.-2037109

PATIENT
  Age: 43 Year
  Sex: Female

DRUGS (6)
  1. IDARUBICIN [Suspect]
     Active Substance: IDARUBICIN
  2. TRETINOIN (INDUCTION THERAPY) [Suspect]
     Active Substance: TRETINOIN
  3. TRETINOIN (MAINTENANCE THERAPY) [Suspect]
     Active Substance: TRETINOIN
  4. PURIXAN [Suspect]
     Active Substance: MERCAPTOPURINE
     Indication: ACUTE PROMYELOCYTIC LEUKAEMIA
  5. TRETINOIN (CONSOLIDATION THERAPY) [Suspect]
     Active Substance: TRETINOIN
  6. METHOTREXATE. [Suspect]
     Active Substance: METHOTREXATE

REACTIONS (2)
  - Leukaemia recurrent [Recovered/Resolved]
  - Off label use [None]
